FAERS Safety Report 11586853 (Version 1)
Quarter: 2015Q3

REPORT INFORMATION
  Report Type: Spontaneous
  Country: US (occurrence: US)
  Receive Date: 20150916
  Receipt Date: 20150916
  Transmission Date: 20151125
  Serious: No
  Sender: FDA-Public Use
  Company Number: US-ELI_LILLY_AND_COMPANY-US200802005412

PATIENT
  Age: 91 Year
  Sex: Female

DRUGS (8)
  1. NEXIUM [Concomitant]
     Active Substance: ESOMEPRAZOLE MAGNESIUM
  2. VITAMIN B12 [Concomitant]
     Active Substance: CYANOCOBALAMIN
  3. LEVAQUIN [Concomitant]
     Active Substance: LEVOFLOXACIN
  4. FORTEO [Suspect]
     Active Substance: TERIPARATIDE
     Dates: start: 200708
  5. CALCIUM [Concomitant]
     Active Substance: CALCIUM
  6. ADVAIR HFA [Concomitant]
     Active Substance: FLUTICASONE PROPIONATE\SALMETEROL XINAFOATE
  7. MULTIVITAMIN [Concomitant]
     Active Substance: VITAMINS
  8. ENSURE                             /00472201/ [Concomitant]

REACTIONS (1)
  - Nephrolithiasis [Unknown]

NARRATIVE: CASE EVENT DATE: 200710
